FAERS Safety Report 4794924-3 (Version None)
Quarter: 2005Q3

REPORT INFORMATION
  Report Type: 
  Country: None (occurrence: None)
  Receive Date: 20050914
  Receipt Date: 20040831
  Transmission Date: 20060218
  Serious: Yes (Other)
  Sender: FDA-Public Use
  Company Number: 163-20785-04080612

PATIENT
  Age: 56 Year
  Sex: Female
  Weight: 23.451 kg

DRUGS (6)
  1. THALOMID [Suspect]
     Indication: NON-SMALL CELL LUNG CANCER
     Dosage: 200-1000 MG, DAILY X 21 DAYS, ORAL
     Route: 048
     Dates: start: 20040309, end: 20040623
  2. THALOMID [Suspect]
     Indication: NON-SMALL CELL LUNG CANCER
     Dosage: 200-1000 MG, DAILY X 21 DAYS, ORAL
     Route: 048
     Dates: start: 20040701, end: 20040717
  3. THALOMID [Suspect]
     Indication: NON-SMALL CELL LUNG CANCER
     Dosage: 200-1000 MG, DAILY X 21 DAYS, ORAL
     Route: 048
     Dates: start: 20040807
  4. PACLITAXEL [Suspect]
     Indication: NON-SMALL CELL LUNG CANCER
     Dosage: 225 MG/M2, DAY 1 Q 21 DAYS, INTRAVENOUS; 45 MG/M2, WEEKLY DURING RT, INTRAVENOUS
     Route: 042
     Dates: start: 20040309, end: 20040608
  5. CARBOPLATIN [Suspect]
     Indication: NON-SMALL CELL LUNG CANCER
     Dosage: AUC = 6, DAY 1 Q 21 DAYS, INTRAVENOUS, AUC = 2, WEEKLY DURING RT, INTRAVENOUS
     Route: 042
     Dates: start: 20040309, end: 20040608
  6. RADIATION (UNKNOWN) [Suspect]
     Indication: NON-SMALL CELL LUNG CANCER
     Dosage: 60GY AT 2.0GY PER FRACTION OVER 6 WEEKS

REACTIONS (2)
  - DYSPHAGIA [None]
  - PAIN [None]
